FAERS Safety Report 8341688-2 (Version None)
Quarter: 2012Q2

REPORT INFORMATION
  Report Type: 
  Country: None (occurrence: None)
  Receive Date: 20120507
  Receipt Date: 20120502
  Transmission Date: 20120825
  Serious: Yes (Other)
  Sender: FDA-Public Use
  Company Number: AR-JNJFOC-20120307775

PATIENT
  Sex: Female
  Weight: 64 kg

DRUGS (12)
  1. GOLIMUMAB [Suspect]
     Indication: RHEUMATOID ARTHRITIS
     Route: 058
     Dates: start: 20070417, end: 20120227
  2. ENALAPRIL MALEATE [Concomitant]
     Indication: HYPERTENSION
     Route: 048
     Dates: start: 20060912, end: 20120312
  3. MEPREDNISONE [Concomitant]
     Indication: RHEUMATOID ARTHRITIS
     Route: 048
     Dates: start: 20090613
  4. GADOPRIL [Concomitant]
     Route: 048
     Dates: start: 20060912, end: 20120312
  5. FLUCONAZOLE [Concomitant]
     Dates: start: 20111221, end: 20120312
  6. GOLIMUMAB [Suspect]
     Route: 058
  7. METHOTREXATE [Suspect]
     Indication: RHEUMATOID ARTHRITIS
     Route: 048
     Dates: start: 20080613, end: 20120312
  8. ANFOLIC [Concomitant]
     Route: 048
     Dates: start: 20070419, end: 20120312
  9. DICLOFENAC [Concomitant]
     Indication: RHEUMATOID ARTHRITIS
     Route: 048
     Dates: start: 20090701, end: 20120312
  10. PLACEBO [Suspect]
     Indication: RHEUMATOID ARTHRITIS
     Route: 048
     Dates: start: 20070417
  11. OMEPRAZOLE [Concomitant]
     Indication: DYSPEPSIA
     Route: 048
     Dates: start: 20080311, end: 20120312
  12. ACETAMINOPHEN [Concomitant]
     Route: 048
     Dates: start: 20090701

REACTIONS (2)
  - ABORTION SPONTANEOUS [None]
  - MATERNAL EXPOSURE DURING PREGNANCY [None]
